FAERS Safety Report 21893924 (Version 2)
Quarter: 2023Q1

REPORT INFORMATION
  Report Type: Spontaneous
  Country: ES (occurrence: ES)
  Receive Date: 20230121
  Receipt Date: 20230204
  Transmission Date: 20230417
  Serious: Yes (Life-Threatening, Hospitalization, Other)
  Sender: FDA-Public Use
  Company Number: ES-PFIZER INC-202300005762

PATIENT
  Age: 69 Year
  Sex: Male

DRUGS (5)
  1. LEVOFLOXACIN [Suspect]
     Active Substance: LEVOFLOXACIN
     Indication: Lung infiltration
     Dosage: UNK
     Route: 065
  2. LEVOFLOXACIN [Suspect]
     Active Substance: LEVOFLOXACIN
     Indication: Off label use
  3. PIPERACILLIN AND TAZOBACTAM [Suspect]
     Active Substance: PIPERACILLIN SODIUM\TAZOBACTAM SODIUM
     Indication: Lung infiltration
     Dosage: UNK
     Route: 065
  4. METHYLPREDNISOLONE SODIUM SUCCINATE [Suspect]
     Active Substance: METHYLPREDNISOLONE SODIUM SUCCINATE
     Indication: Lung infiltration
     Dosage: UNK
     Route: 042
  5. GANCICLOVIR [Concomitant]
     Active Substance: GANCICLOVIR
     Indication: Lung infiltration
     Dosage: UNK
     Route: 042

REACTIONS (3)
  - Strongyloidiasis [Recovered/Resolved]
  - Pulmonary toxicity [Unknown]
  - Off label use [Unknown]
